FAERS Safety Report 6501811-9 (Version None)
Quarter: 2009Q4

REPORT INFORMATION
  Report Type: 
  Country: None (occurrence: None)
  Receive Date: 20091216
  Receipt Date: 20090611
  Transmission Date: 20100525
  Serious: Yes (Other)
  Sender: FDA-Public Use
  Company Number: US-AMGEN-QUU347479

PATIENT
  Sex: Male
  Weight: 82.6 kg

DRUGS (5)
  1. ARANESP [Suspect]
     Indication: RENAL FAILURE CHRONIC
     Route: 058
     Dates: start: 20070309
  2. RITUXAN [Concomitant]
     Dates: start: 20070905, end: 20071005
  3. EXJADE [Concomitant]
     Dates: start: 20081205
  4. REVLIMID [Concomitant]
     Dates: start: 20080314
  5. PREDNISONE [Concomitant]
     Dates: start: 20070522

REACTIONS (2)
  - BLOOD IRON ABNORMAL [None]
  - DRUG INEFFECTIVE [None]
